FAERS Safety Report 15120566 (Version 1)
Quarter: 2018Q3

REPORT INFORMATION
  Report Type: Spontaneous
  Country: GB (occurrence: GB)
  Receive Date: 20180709
  Receipt Date: 20180709
  Transmission Date: 20181010
  Serious: Yes (Hospitalization, Other)
  Sender: FDA-Public Use
  Company Number: GB-AUROBINDO-AUR-APL-2018-034191

PATIENT
  Age: 16 Year
  Sex: Male
  Weight: 65 kg

DRUGS (2)
  1. LAMOTRIGINE. [Suspect]
     Active Substance: LAMOTRIGINE
     Indication: EPILEPSY
     Dosage: 25 MILLIGRAM, DAILY IN NIGHT
     Route: 048
     Dates: start: 20180508, end: 20180603
  2. LAMOTRIGINE. [Suspect]
     Active Substance: LAMOTRIGINE
     Dosage: 50 MILLIGRAM, DAILY
     Route: 048
     Dates: start: 20180604, end: 20180609

REACTIONS (6)
  - Mucosal inflammation [Unknown]
  - Hypophagia [Unknown]
  - Lip swelling [Unknown]
  - Chapped lips [Unknown]
  - Rash pruritic [Unknown]
  - Stevens-Johnson syndrome [Recovering/Resolving]

NARRATIVE: CASE EVENT DATE: 20180604
